FAERS Safety Report 15522679 (Version 1)
Quarter: 2018Q4

REPORT INFORMATION
  Report Type: Spontaneous
  Country: US (occurrence: US)
  Receive Date: 20181017
  Receipt Date: 20181017
  Transmission Date: 20190205
  Serious: No
  Sender: FDA-Public Use
  Company Number: US-NOVOPROD-620383

PATIENT
  Age: 66 Year
  Sex: Female

DRUGS (1)
  1. TRESIBA FLEXTOUCH U200 [Suspect]
     Active Substance: INSULIN DEGLUDEC
     Indication: PRODUCT USED FOR UNKNOWN INDICATION
     Dosage: 8 U, QD
     Route: 058
     Dates: start: 201701

REACTIONS (2)
  - Device breakage [Recovered/Resolved]
  - Blood glucose increased [Recovered/Resolved]
